FAERS Safety Report 7542381-6 (Version None)
Quarter: 2011Q2

REPORT INFORMATION
  Report Type: 
  Country: None (occurrence: None)
  Receive Date: 20110605
  Receipt Date: 20110524
  Transmission Date: 20111010
  Serious: Yes (Hospitalization)
  Sender: FDA-Public Use
  Company Number: 2011SP002256

PATIENT
  Age: 39 Year
  Sex: Male
  Weight: 136.0791 kg

DRUGS (7)
  1. CLONAZEPAM [Concomitant]
  2. SAPHRIS [Suspect]
     Indication: BIPOLAR DISORDER
     Dosage: 10 MG;BID; SL 20 MG;HS;PO
     Route: 048
     Dates: start: 20101001, end: 20110105
  3. SAPHRIS [Suspect]
     Indication: BIPOLAR DISORDER
     Dosage: 10 MG;BID; SL 20 MG;HS;PO
     Route: 048
     Dates: start: 20100901, end: 20101001
  4. SEROQUEL [Concomitant]
  5. ALPRAZOLAM [Concomitant]
  6. PAROXETINE HCL [Concomitant]
  7. ADDERALL 10 [Concomitant]

REACTIONS (4)
  - OESOPHAGEAL RUPTURE [None]
  - OESOPHAGEAL ULCER HAEMORRHAGE [None]
  - JEJUNAL ULCER [None]
  - DUODENAL ULCER HAEMORRHAGE [None]
